FAERS Safety Report 8026453-8 (Version None)
Quarter: 2012Q1

REPORT INFORMATION
  Report Type: 
  Country: None (occurrence: None)
  Receive Date: 20120105
  Receipt Date: 20111018
  Transmission Date: 20120608
  Serious: Yes (Hospitalization)
  Sender: FDA-Public Use
  Company Number: US-ROCHE-GNE317133

PATIENT
  Age: 86 Year
  Sex: Female

DRUGS (24)
  1. METOPROLOL TARTRATE [Concomitant]
     Indication: HYPERTENSION
     Dosage: UNK
     Dates: start: 20081201
  2. FOLIC ACID [Concomitant]
  3. ZOCOR [Concomitant]
  4. VITAMIN B3 [Concomitant]
     Indication: OSTEOPOROSIS PROPHYLAXIS
     Dosage: UNK
     Dates: start: 20070301
  5. ASPIRIN [Concomitant]
     Indication: CARDIOVASCULAR EVENT PROPHYLAXIS
     Dosage: UNK
     Dates: start: 20070301
  6. LOVENOX [Concomitant]
     Indication: CARDIOVASCULAR EVENT PROPHYLAXIS
     Dosage: UNK
     Dates: start: 20091101
  7. LEVOXYL [Concomitant]
     Dates: start: 19940101
  8. MULTI-VITAMIN [Concomitant]
     Dates: start: 20100201
  9. RADIATION THERAPY [Suspect]
     Indication: AGE-RELATED MACULAR DEGENERATION
     Dosage: UNK
     Dates: start: 20090505
  10. VITAMIN B-12 [Concomitant]
     Indication: ARTERIOSCLEROSIS CORONARY ARTERY
     Dosage: UNK
     Dates: start: 20070301
  11. VITAMIN B-12 [Concomitant]
     Dates: start: 20100201
  12. CALCIUM CARBONATE [Concomitant]
     Indication: GASTROOESOPHAGEAL REFLUX DISEASE
     Dosage: UNK
     Dates: start: 20070301
  13. RAZADYNE [Concomitant]
     Indication: DEMENTIA ALZHEIMER'S TYPE
     Dosage: UNK
     Dates: start: 20081201
  14. COLACE [Concomitant]
  15. PEPCID [Concomitant]
  16. LIPITOR [Concomitant]
     Indication: HYPERLIPIDAEMIA
     Dosage: UNK
     Dates: start: 20081201
  17. METOPROLOL [Concomitant]
     Indication: CHEST PAIN
     Dosage: UNK
     Dates: start: 20091201
  18. RANIBIZUMAB [Suspect]
     Indication: AGE-RELATED MACULAR DEGENERATION
     Dosage: UNK
     Dates: start: 20090505
  19. MYLANTA PRODUCT NOS [Concomitant]
     Indication: GASTROOESOPHAGEAL REFLUX DISEASE
     Dosage: UNK
     Dates: start: 20091101
  20. SIMVASTATIN [Concomitant]
     Indication: HYPERCHOLESTEROLAEMIA
  21. SYNTHROID [Concomitant]
  22. PRESERVISION AREDS [Concomitant]
     Indication: SUPPLEMENTATION THERAPY
     Dosage: UNK
     Dates: start: 20070301
  23. FOSAMAX [Concomitant]
     Indication: OSTEOPOROSIS
     Dosage: UNK
     Dates: start: 20081201
  24. DIGOXIN [Concomitant]
     Indication: ATRIAL FIBRILLATION
     Dates: start: 20091101

REACTIONS (4)
  - NEUROLOGIC NEGLECT SYNDROME [None]
  - CEREBROVASCULAR ACCIDENT [None]
  - HEMIPLEGIA [None]
  - HEMIANOPIA HOMONYMOUS [None]
